FAERS Safety Report 9159545 (Version 4)
Quarter: 2014Q1

REPORT INFORMATION
  Report Type: Report from Study
  Country: DE (occurrence: DE)
  Receive Date: 20130313
  Receipt Date: 20140204
  Transmission Date: 20141002
  Serious: Yes (Hospitalization)
  Sender: FDA-Public Use
  Company Number: DE-VERTEX PHARMACEUTICALS INC.-2013-003393

PATIENT
  Sex: Male
  Weight: 68 kg

DRUGS (10)
  1. VX-950 (TELAPREVIR) [Suspect]
     Indication: HEPATITIS C
     Dosage: 2250 MG, QD
     Route: 048
     Dates: start: 20111205, end: 20120227
  2. COPEGUS [Suspect]
     Indication: HEPATITIS C
     Dosage: 1200 MG, QD
     Route: 048
     Dates: start: 20111205, end: 20121105
  3. PEGASYS [Suspect]
     Indication: HEPATITIS C
     Dosage: 180 ?G, QW
     Route: 058
     Dates: start: 20111205, end: 20121105
  4. CITALOPRAM [Concomitant]
     Indication: DEPRESSION
     Dosage: 10 MG, UNK
     Route: 048
     Dates: start: 20120521, end: 201208
  5. CITALOPRAM [Concomitant]
     Dosage: 20 MG, UNK
     Route: 048
     Dates: start: 20120319, end: 20120520
  6. CITALOPRAM [Concomitant]
     Dosage: 10 MG, UNK
     Route: 048
     Dates: start: 20120104, end: 20120318
  7. IBUPROFEN [Concomitant]
     Indication: ARTHRALGIA
     Dosage: 600 MG, UNK
     Route: 048
  8. IBUPROFEN [Concomitant]
     Dosage: DOSAGE FORM: UNSPECIFIED
  9. VIGANTOLETTEN [Concomitant]
     Dosage: UNK
     Route: 065
  10. VIGANTOLETTEN [Concomitant]
     Dosage: DOSAGE FORM: UNSPECIFIED

REACTIONS (1)
  - Tonsil cancer [Recovered/Resolved]
